FAERS Safety Report 8575117 (Version 3)
Quarter: 2013Q1

REPORT INFORMATION
  Report Type: Spontaneous
  Country: US (occurrence: US)
  Receive Date: 20120523
  Receipt Date: 20130205
  Transmission Date: 20140127
  Serious: Yes (Death, Hospitalization, Other)
  Sender: FDA-Public Use
  Company Number: US-ELI_LILLY_AND_COMPANY-US201011007444

PATIENT
  Age: 75 None
  Sex: Female

DRUGS (6)
  1. FORTEO [Suspect]
     Indication: OSTEOPOROSIS
     Dosage: 20  UG, QD
     Dates: start: 20100726
  2. FORTEO [Suspect]
     Dosage: 20 UG, QD
     Dates: start: 20100726
  3. FORTEO [Suspect]
     Dosage: 20 UG, QD
     Dates: start: 20100726
  4. MIRTAZAPINE [Concomitant]
     Dosage: UNK, QD
  5. EXELON [Concomitant]
     Dosage: UNK, QD
  6. VITAMINS [Concomitant]
     Dosage: UNK, QD

REACTIONS (9)
  - Death [Fatal]
  - Femur fracture [Unknown]
  - Hip fracture [Unknown]
  - Abasia [Unknown]
  - Constipation [Unknown]
  - Asthenia [Unknown]
  - Injection site pain [Recovering/Resolving]
  - Overdose [Unknown]
  - Dementia [Not Recovered/Not Resolved]
